FAERS Safety Report 6554603-9 (Version None)
Quarter: 2010Q1

REPORT INFORMATION
  Report Type: 
  Country: None (occurrence: None)
  Receive Date: 20100127
  Receipt Date: 20100113
  Transmission Date: 20100710
  Serious: Yes (Hospitalization)
  Sender: FDA-Public Use
  Company Number: DE-MYLANLABS-2010S1000670

PATIENT
  Age: 51 Year
  Sex: Female
  Weight: 75 kg

DRUGS (4)
  1. IBUPROFEN [Interacting]
     Indication: INTERVERTEBRAL DISC DISORDER
     Dosage: AM TAG 2-3 MAL 2 TABLETTEN (40 TABLETTEN IN 7 TAGEN)
     Route: 048
     Dates: start: 20090924, end: 20091001
  2. PARACETAMOL [Suspect]
     Indication: INTERVERTEBRAL DISC DISORDER
     Route: 048
     Dates: start: 19990101, end: 20090923
  3. RASILEZ HCT [Interacting]
     Indication: HYPERTENSION
     Dosage: 1 DF= 150MG ALISKIREN + 12.5MG HCT
     Route: 048
     Dates: end: 20091001
  4. PANTOPRAZOLE [Concomitant]
     Indication: PROPHYLAXIS AGAINST GASTROINTESTINAL ULCER
     Route: 048
     Dates: start: 20000101

REACTIONS (2)
  - DRUG INTERACTION [None]
  - HEPATITIS CHOLESTATIC [None]
